FAERS Safety Report 19698470 (Version 1)
Quarter: 2021Q3

REPORT INFORMATION
  Report Type: Spontaneous
  Country: US (occurrence: US)
  Receive Date: 20210813
  Receipt Date: 20210813
  Transmission Date: 20211014
  Serious: Yes (Hospitalization)
  Sender: FDA-Public Use
  Company Number: None

PATIENT
  Age: 69 Year
  Sex: Male
  Weight: 122 kg

DRUGS (6)
  1. CEFTRIAXONE. [Suspect]
     Active Substance: CEFTRIAXONE
     Indication: BACTERAEMIA
     Route: 042
  2. LOSARTAN. [Concomitant]
     Active Substance: LOSARTAN
  3. LEVOFLOXACIN. [Suspect]
     Active Substance: LEVOFLOXACIN
     Indication: BACTERAEMIA
  4. CEFTRIAXONE. [Suspect]
     Active Substance: CEFTRIAXONE
     Indication: DEVICE RELATED SEPSIS
     Route: 042
  5. SPIRONOLACTONE. [Concomitant]
     Active Substance: SPIRONOLACTONE
  6. LEVOFLOXACIN. [Suspect]
     Active Substance: LEVOFLOXACIN
     Indication: DEVICE RELATED SEPSIS

REACTIONS (10)
  - Rash [None]
  - Linear IgA disease [None]
  - Urinary retention [None]
  - Oral pain [None]
  - Bladder catheterisation [None]
  - Glossodynia [None]
  - Blood creatine increased [None]
  - Procedural complication [None]
  - Blood urea increased [None]
  - Urticaria [None]

NARRATIVE: CASE EVENT DATE: 20210728
